FAERS Safety Report 24418207 (Version 1)
Quarter: 2024Q4

REPORT INFORMATION
  Report Type: Spontaneous
  Country: GB (occurrence: GB)
  Receive Date: 20241009
  Receipt Date: 20241009
  Transmission Date: 20250115
  Serious: Yes (Other)
  Sender: EISAI
  Company Number: GB-Eisai-EC-2024-176150

PATIENT
  Age: 66 Year
  Sex: Female

DRUGS (1)
  1. LENVATINIB [Suspect]
     Active Substance: LENVATINIB
     Indication: Thyroid cancer
     Route: 048

REACTIONS (1)
  - Posterior reversible encephalopathy syndrome [Unknown]
